FAERS Safety Report 23041021 (Version 5)
Quarter: 2025Q3

REPORT INFORMATION
  Report Type: Spontaneous
  Country: US (occurrence: US)
  Receive Date: 20231006
  Receipt Date: 20250710
  Transmission Date: 20251020
  Serious: No
  Sender: MERCK SHARP & DOHME LLC
  Company Number: US-009507513-2309USA010257

PATIENT
  Sex: Female
  Weight: 105.22 kg

DRUGS (18)
  1. PEMBROLIZUMAB [Suspect]
     Active Substance: PEMBROLIZUMAB
     Indication: Endometrial cancer
     Dates: end: 202506
  2. PEMBROLIZUMAB [Suspect]
     Active Substance: PEMBROLIZUMAB
     Indication: Endometrial cancer
  3. PEMBROLIZUMAB [Suspect]
     Active Substance: PEMBROLIZUMAB
     Indication: Endometrial cancer
     Dates: start: 20230919, end: 20230919
  4. LENVIMA [Suspect]
     Active Substance: LENVATINIB
     Indication: Endometrial cancer
     Dosage: DOSE DESCRIPTION : 20 MILLIGRAM, DAILY (QD)?DAILY DOSE : 20 MILLIGRAM
     Route: 048
     Dates: start: 20230829, end: 2023
  5. LENVIMA [Suspect]
     Active Substance: LENVATINIB
     Indication: Endometrial cancer
     Dosage: DOSE DESCRIPTION : UNK
     Route: 048
     Dates: start: 202307
  6. LENVIMA [Suspect]
     Active Substance: LENVATINIB
     Indication: Endometrial cancer
     Dosage: DOSE DESCRIPTION : 10 MILLIGRAM, DAILY (QD)?DAILY DOSE : 10 MILLIGRAM
     Route: 048
     Dates: start: 20230919
  7. OLMESARTAN MEDOXOMIL [Concomitant]
     Active Substance: OLMESARTAN MEDOXOMIL
     Route: 048
  8. LEVOCETIRIZINE DIHYDROCHLORIDE [Concomitant]
     Active Substance: LEVOCETIRIZINE DIHYDROCHLORIDE
  9. AMLODIPINE [Concomitant]
     Active Substance: AMLODIPINE BESYLATE
  10. BIOTENE PBF [Concomitant]
     Active Substance: SODIUM FLUORIDE
  11. DIPHENHYDRAMINE [Concomitant]
     Active Substance: DIPHENHYDRAMINE
  12. HYDROCODONE [Concomitant]
     Active Substance: HYDROCODONE
  13. LACTASE [Concomitant]
     Active Substance: LACTASE
  14. LORAZEPAM [Concomitant]
     Active Substance: LORAZEPAM
  15. ONDANSETRON HYDROCHLORIDE [Concomitant]
     Active Substance: ONDANSETRON HYDROCHLORIDE
  16. PEPCID AC [Concomitant]
     Active Substance: FAMOTIDINE
  17. PREPARATION H HYDROCORTISONE [Concomitant]
     Active Substance: HYDROCORTISONE
  18. VITAMIN D3 [Concomitant]
     Active Substance: CHOLECALCIFEROL

REACTIONS (11)
  - Fatigue [Unknown]
  - Fatigue [Unknown]
  - Pruritus [Unknown]
  - Dyspnoea [Unknown]
  - Somnolence [Unknown]
  - Eye pain [Unknown]
  - Pain in jaw [Unknown]
  - Product use issue [Unknown]
  - Dysphonia [Unknown]
  - Rash [Unknown]
  - Ophthalmic migraine [Unknown]

NARRATIVE: CASE EVENT DATE: 20230101
